FAERS Safety Report 4351365-0 (Version None)
Quarter: 2004Q2

REPORT INFORMATION
  Report Type: 
  Country: None (occurrence: None)
  Receive Date: 20040430
  Receipt Date: 20040430
  Transmission Date: 20050107
  Serious: No
  Sender: FDA-Public Use
  Company Number: None

PATIENT
  Age: 70 Year
  Sex: Male
  Weight: 86.1834 kg

DRUGS (2)
  1. ELLENCE [Suspect]
     Indication: GASTRIC CANCER
     Dosage: 81 MG SLOW IVP
     Route: 042
     Dates: start: 20040105
  2. ELLENCE [Suspect]
     Indication: GASTRIC CANCER
     Dosage: 81 MG SLOW IVP
     Route: 042
     Dates: start: 20040413

REACTIONS (4)
  - CHEST PAIN [None]
  - EYE IRRITATION [None]
  - FEELING ABNORMAL [None]
  - NAUSEA [None]
